FAERS Safety Report 24150694 (Version 1)
Quarter: 2024Q3

REPORT INFORMATION
  Report Type: Other
  Country: IN (occurrence: US)
  Receive Date: 20240730
  Receipt Date: 20240730
  Transmission Date: 20241016
  Serious: Yes (Disabling, Other)
  Sender: DEXCEL
  Company Number: IN-DEXPHARM-2024-2484

PATIENT
  Age: 49 Year
  Sex: Male

DRUGS (2)
  1. DEXAMETHASONE [Suspect]
     Active Substance: DEXAMETHASONE
     Dosage: IV DEXAMETHASONE 4MG
  2. IVERMECTIN [Concomitant]
     Active Substance: IVERMECTIN

REACTIONS (1)
  - Osteonecrosis of jaw [Unknown]
